FAERS Safety Report 24235104 (Version 1)
Quarter: 2024Q3

REPORT INFORMATION
  Report Type: Other
  Country: DE (occurrence: DE)
  Receive Date: 20240821
  Receipt Date: 20240821
  Transmission Date: 20241017
  Serious: Yes (Other)
  Sender: APRECIA PHARMACEUTICALS
  Company Number: DE-Aprecia Pharmaceuticals-APRE20241107

PATIENT
  Age: 67 Year
  Sex: Male

DRUGS (8)
  1. LEVETIRACETAM [Suspect]
     Active Substance: LEVETIRACETAM
     Indication: Seizure prophylaxis
     Dosage: 500 MG
     Route: 065
  2. FENTANYL [Suspect]
     Active Substance: FENTANYL\FENTANYL CITRATE
     Indication: Spinal compression fracture
     Dosage: UNKNOWN
     Route: 065
  3. TRAMADOL [Suspect]
     Active Substance: TRAMADOL\TRAMADOL HYDROCHLORIDE
     Indication: Spinal compression fracture
     Dosage: UNKNOWN
     Route: 065
  4. IBUPROFEN [Suspect]
     Active Substance: IBUPROFEN
     Indication: Spinal compression fracture
     Dosage: UNKNOWN
     Route: 065
  5. hydrocortisone_ [Concomitant]
     Dosage: 25 MG
  6. LEVOTHYROXINE [Concomitant]
     Active Substance: LEVOTHYROXINE\LEVOTHYROXINE SODIUM
     Dosage: 112 MCG
  7. MINIRIN [Concomitant]
     Active Substance: DESMOPRESSIN ACETATE
     Route: 045
  8. TESTOSTERONE [Concomitant]
     Active Substance: TESTOSTERONE
     Route: 062

REACTIONS (2)
  - Hyponatraemic seizure [Recovered/Resolved]
  - Simple partial seizures [Recovered/Resolved]
